FAERS Safety Report 6730428-6 (Version None)
Quarter: 2010Q2

REPORT INFORMATION
  Report Type: 
  Country: None (occurrence: None)
  Receive Date: 20100518
  Receipt Date: 20100511
  Transmission Date: 20101027
  Serious: Yes (Disabling)
  Sender: FDA-Public Use
  Company Number: B0649277A

PATIENT
  Sex: Female

DRUGS (8)
  1. TYKERB [Suspect]
     Indication: BREAST CANCER RECURRENT
     Dosage: 1000MG PER DAY
     Route: 048
     Dates: start: 20100218, end: 20100309
  2. XELODA [Suspect]
     Indication: DRUG USE FOR UNKNOWN INDICATION
     Dosage: 1200MG PER DAY
     Route: 048
     Dates: start: 20100218, end: 20100309
  3. CRAVIT [Concomitant]
     Dosage: 500MG PER DAY
     Route: 048
     Dates: start: 20100310, end: 20100313
  4. HERCEPTIN [Concomitant]
     Indication: BREAST CANCER
     Dosage: 380MG PER DAY
     Route: 042
     Dates: start: 20100407, end: 20100407
  5. EXCEGRAN [Concomitant]
     Indication: CONVULSION PROPHYLAXIS
     Route: 048
     Dates: start: 20091001, end: 20100427
  6. CYANOCOBALAMIN [Concomitant]
     Indication: PARALYSIS
     Route: 048
     Dates: start: 20100101, end: 20100427
  7. FERROMIA [Concomitant]
     Route: 048
     Dates: start: 20100106, end: 20100427
  8. ZOMETA [Concomitant]
     Route: 042

REACTIONS (7)
  - ANAEMIA [None]
  - HAEMATOCRIT DECREASED [None]
  - HAEMOGLOBIN DECREASED [None]
  - LIVER FUNCTION TEST ABNORMAL [None]
  - MUSCULAR WEAKNESS [None]
  - PERIPHERAL NERVE PALSY [None]
  - POLYNEUROPATHY [None]
